FAERS Safety Report 7103215-7 (Version None)
Quarter: 2010Q4

REPORT INFORMATION
  Report Type: 
  Country: None (occurrence: None)
  Receive Date: 20101115
  Receipt Date: 20101104
  Transmission Date: 20110411
  Serious: Yes (Other)
  Sender: FDA-Public Use
  Company Number: DE-B.I. PHARMACEUTICALS,INC./RIDGEFIELD-2010-DE-06051DE

PATIENT
  Age: 38 Year
  Sex: Female

DRUGS (4)
  1. VIRAMUNE [Suspect]
     Indication: HIV INFECTION
     Dosage: 400 MG
     Dates: start: 19971209
  2. LAMIVUDINE [Concomitant]
     Indication: HIV INFECTION
     Dates: start: 19971209
  3. DIDANOSINE [Concomitant]
     Indication: HIV INFECTION
     Dates: start: 19971209
  4. DIAZEPAM [Concomitant]
     Dates: start: 19971009

REACTIONS (1)
  - ABORTION SPONTANEOUS [None]
